FAERS Safety Report 4521790-3 (Version None)
Quarter: 2004Q4

REPORT INFORMATION
  Report Type: 
  Country: None (occurrence: None)
  Receive Date: 20041208
  Receipt Date: 20041208
  Transmission Date: 20050328
  Serious: No
  Sender: FDA-Public Use
  Company Number: None

PATIENT
  Age: 71 Year
  Sex: Male
  Weight: 70.3075 kg

DRUGS (3)
  1. VIOXX [Suspect]
     Indication: OSTEOARTHRITIS
     Dates: start: 19991208, end: 20000102
  2. ZOCOR [Concomitant]
  3. ROXICET [Concomitant]

REACTIONS (6)
  - ANGINA PECTORIS [None]
  - BLOOD PRESSURE INCREASED [None]
  - CHEST PAIN [None]
  - DECREASED ACTIVITY [None]
  - DYSPNOEA EXERTIONAL [None]
  - FEAR [None]
